FAERS Safety Report 5287576-X (Version None)
Quarter: 2007Q1

REPORT INFORMATION
  Report Type: 
  Country: None (occurrence: None)
  Receive Date: 20070126
  Receipt Date: 20050921
  Transmission Date: 20070707
  Serious: No
  Sender: FDA-Public Use
  Company Number: 2006CT001139

PATIENT
  Age: 53 Year
  Sex: Female
  Weight: 113 kg

DRUGS (15)
  1. VENTAVIS [Suspect]
     Indication: PULMONARY HYPERTENSION
     Dosage: 5 UG;8XD;INH
     Route: 055
     Dates: start: 20050428, end: 20050830
  2. WELLBUTRIN [Concomitant]
  3. ZOLOFT [Concomitant]
  4. SIMVASTATIN [Concomitant]
  5. WARFARIN [Concomitant]
  6. TRACLEER [Concomitant]
  7. DEMADEX [Concomitant]
  8. AMLODIPINE [Concomitant]
  9. KLONOPIN [Concomitant]
  10. MICARDIS [Concomitant]
  11. K-DUR 10 [Concomitant]
  12. ALDACTONE [Concomitant]
  13. NEXIUM [Concomitant]
  14. PULMICORT [Concomitant]
  15. IRON [Concomitant]

REACTIONS (1)
  - ASTHMA [None]
